FAERS Safety Report 6641007-3 (Version None)
Quarter: 2010Q1

REPORT INFORMATION
  Report Type: 
  Country: None (occurrence: None)
  Receive Date: 20100318
  Receipt Date: 20100308
  Transmission Date: 20100710
  Serious: Yes (Hospitalization)
  Sender: FDA-Public Use
  Company Number: B0638184A

PATIENT
  Sex: Male

DRUGS (7)
  1. ZOPHREN [Suspect]
     Indication: PROPHYLAXIS OF NAUSEA AND VOMITING
     Dosage: 8MG CYCLIC
     Route: 042
     Dates: start: 20100127
  2. PACLITAXEL [Suspect]
     Indication: METASTATIC BRONCHIAL CARCINOMA
     Dosage: 280MG CYCLIC
     Route: 042
     Dates: start: 20100127
  3. CARBOPLATIN [Suspect]
     Indication: METASTATIC BRONCHIAL CARCINOMA
     Route: 042
     Dates: start: 20100127
  4. POLARAMINE [Concomitant]
     Dosage: 5MG CYCLIC
     Route: 042
     Dates: start: 20100127
  5. SOLU-MEDROL [Concomitant]
     Dosage: 120MG CYCLIC
     Route: 042
     Dates: start: 20100127
  6. RANIPLEX [Concomitant]
     Dosage: 100MG CYCLIC
     Route: 042
     Dates: start: 20100127
  7. SECTRAL [Concomitant]
     Route: 065
     Dates: end: 20100101

REACTIONS (3)
  - ACUTE CORONARY SYNDROME [None]
  - CHEST PAIN [None]
  - ELECTROCARDIOGRAM ST SEGMENT ELEVATION [None]
